FAERS Safety Report 8328354-4 (Version None)
Quarter: 2012Q2

REPORT INFORMATION
  Report Type: 
  Country: None (occurrence: None)
  Receive Date: 20120502
  Receipt Date: 20120419
  Transmission Date: 20120825
  Serious: Yes (Hospitalization)
  Sender: FDA-Public Use
  Company Number: JP-PFIZER INC-2012105937

PATIENT
  Age: 87 Year
  Sex: Male

DRUGS (5)
  1. TANATRIL ^ALGOL^ [Concomitant]
     Dosage: 5 MG/DAY
     Route: 048
  2. KREMEZIN [Concomitant]
     Dosage: 6 DF/DAY
     Route: 048
  3. AMLODIPINE [Suspect]
     Indication: HYPERTENSION
     Dosage: 10 MG/DAY
     Route: 048
     Dates: start: 20111112
  4. TELMISARTAN AND HYDROCHLOROTHIAZIDE [Concomitant]
     Indication: HYPERTENSION
     Dosage: 1 DF/DAY
     Route: 048
     Dates: start: 20111112
  5. PRODEC [Concomitant]
     Dosage: 100 MG/DAY
     Route: 048

REACTIONS (1)
  - RENAL IMPAIRMENT [None]
